FAERS Safety Report 18584820 (Version 1)
Quarter: 2020Q4

REPORT INFORMATION
  Report Type: Spontaneous
  Country: FR (occurrence: FR)
  Receive Date: 20201207
  Receipt Date: 20201207
  Transmission Date: 20210114
  Serious: Yes (Life-Threatening)
  Sender: FDA-Public Use
  Company Number: FR-ROCHE-2726101

PATIENT
  Age: 63 Year
  Sex: Female
  Weight: 95.8 kg

DRUGS (5)
  1. BISOCE [Concomitant]
     Active Substance: BISOPROLOL
  2. SIMVASTATINE [Concomitant]
     Active Substance: SIMVASTATIN
  3. COVERAM [Concomitant]
     Active Substance: AMLODIPINE\PERINDOPRIL
  4. OCREVUS [Suspect]
     Active Substance: OCRELIZUMAB
     Indication: MULTIPLE SCLEROSIS
     Route: 041
     Dates: start: 20201113, end: 20201113
  5. IMATINIB. [Concomitant]
     Active Substance: IMATINIB MESYLATE
     Indication: CHRONIC MYELOID LEUKAEMIA
     Route: 048

REACTIONS (6)
  - Respiratory distress [Recovering/Resolving]
  - Anxiety [Recovered/Resolved]
  - Anaphylactic reaction [Recovering/Resolving]
  - Hypotension [Recovered/Resolved]
  - Tachycardia [Recovering/Resolving]
  - Flushing [Recovered/Resolved]

NARRATIVE: CASE EVENT DATE: 20201113
